FAERS Safety Report 13953976 (Version 1)
Quarter: 2017Q3

REPORT INFORMATION
  Report Type: Spontaneous
  Country: IR (occurrence: IR)
  Receive Date: 20170911
  Receipt Date: 20170911
  Transmission Date: 20171128
  Serious: Yes (Other)
  Sender: FDA-Public Use
  Company Number: IR-ACCORD-058096

PATIENT
  Age: 27 Year
  Sex: Male

DRUGS (1)
  1. TRAMADOL/TRAMADOL HYDROCHLORIDE [Suspect]
     Active Substance: TRAMADOL HYDROCHLORIDE
     Indication: INTERVERTEBRAL DISC DISORDER
     Dosage: PRESCRIBED FOR 400 MG DAILY
     Route: 048

REACTIONS (3)
  - Conjunctival hyperaemia [Unknown]
  - Accidental overdose [Unknown]
  - Blister [Unknown]
